FAERS Safety Report 6713796-0 (Version None)
Quarter: 2010Q2

REPORT INFORMATION
  Report Type: 
  Country: None (occurrence: None)
  Receive Date: 20100506
  Receipt Date: 20100506
  Transmission Date: 20101027
  Serious: Yes (Other)
  Sender: FDA-Public Use
  Company Number: GXKR2010DE03987

PATIENT
  Sex: Female
  Weight: 62 kg

DRUGS (1)
  1. IBUHEXAL AKUT (NGX) [Suspect]
     Indication: HIP FRACTURE
     Dosage: 400 MG, UNK
     Route: 048

REACTIONS (6)
  - DYSPNOEA [None]
  - FACE OEDEMA [None]
  - GENERALISED OEDEMA [None]
  - OEDEMA PERIPHERAL [None]
  - PULMONARY OEDEMA [None]
  - VISUAL IMPAIRMENT [None]
